FAERS Safety Report 15599590 (Version 2)
Quarter: 2019Q1

REPORT INFORMATION
  Report Type: Report from Study
  Country: None (occurrence: AU)
  Receive Date: 20181108
  Receipt Date: 20190124
  Transmission Date: 20190417
  Serious: Yes (Hospitalization)
  Sender: FDA-Public Use
  Company Number: AU-ABBVIE-18P-008-2547094-00

PATIENT
  Age: 61 Year
  Sex: Female

DRUGS (2)
  1. RO6870810 [Suspect]
     Active Substance: RO-6870810
     Indication: DIFFUSE LARGE B-CELL LYMPHOMA
     Dosage: MOST RECENT PRIOR TO AE: 17OCT18 12:20, 29OCT18 11:40, 24OCT18 12:40
     Route: 058
     Dates: start: 20180925
  2. VENETOCLAX. [Suspect]
     Active Substance: VENETOCLAX
     Indication: DIFFUSE LARGE B-CELL LYMPHOMA
     Dosage: DOSES PRIOR TO AE:17OCT18 12:18, 29OCT18 11:30, 30OCT18 13:40, 24OCT18 12:35
     Route: 048
     Dates: start: 20180925

REACTIONS (2)
  - Haematuria [Not Recovered/Not Resolved]
  - Lower gastrointestinal haemorrhage [Not Recovered/Not Resolved]

NARRATIVE: CASE EVENT DATE: 20181030
